FAERS Safety Report 5277998-5 (Version None)
Quarter: 2007Q1

REPORT INFORMATION
  Report Type: 
  Country: None (occurrence: None)
  Receive Date: 20070321
  Receipt Date: 20070306
  Transmission Date: 20070707
  Serious: Yes (Other)
  Sender: FDA-Public Use
  Company Number: S06-IRL-04008-01

PATIENT
  Age: 50 Year
  Sex: Female

DRUGS (8)
  1. LEXAPRO [Suspect]
     Indication: DEPRESSION
     Dosage: 5 MG QD PO
     Route: 048
     Dates: start: 20060727, end: 20060912
  2. MIRTAZAPINE [Suspect]
     Dosage: 30 MG QD PO
  3. SALBUTAMOL [Suspect]
     Dosage: 100 MCG/KG
  4. VENTOLIN [Suspect]
  5. XANAX [Concomitant]
  6. ALVESCO (CISLESONID) [Concomitant]
  7. CEFACLOR [Concomitant]
  8. GYNO-PEVARYL (ECONAZOLE NITRATE) [Concomitant]

REACTIONS (3)
  - BLOOD POTASSIUM DECREASED [None]
  - EXTRASYSTOLES [None]
  - FLUSHING [None]
